FAERS Safety Report 11990993 (Version 2)
Quarter: 2016Q2

REPORT INFORMATION
  Report Type: Report from Study
  Country: US (occurrence: US)
  Receive Date: 20160202
  Receipt Date: 20160407
  Transmission Date: 20160815
  Serious: Yes (Hospitalization)
  Sender: FDA-Public Use
  Company Number: US-BIOGEN-2015BI147447

PATIENT
  Sex: Female

DRUGS (1)
  1. TECFIDERA [Suspect]
     Active Substance: DIMETHYL FUMARATE
     Indication: MULTIPLE SCLEROSIS
     Route: 048
     Dates: start: 2013

REACTIONS (13)
  - Tremor [Unknown]
  - Joint contracture [Unknown]
  - Hypoaesthesia [Unknown]
  - Weight decreased [Unknown]
  - Gait disturbance [Unknown]
  - Fall [Recovered/Resolved]
  - Hypophagia [Unknown]
  - Memory impairment [Unknown]
  - Paraesthesia [Unknown]
  - Flushing [Unknown]
  - Limb injury [Unknown]
  - Joint injury [Unknown]
  - Drug dose omission [Unknown]

NARRATIVE: CASE EVENT DATE: 2013
